FAERS Safety Report 7633222-7 (Version None)
Quarter: 2011Q3

REPORT INFORMATION
  Report Type: 
  Country: None (occurrence: None)
  Receive Date: 20110725
  Receipt Date: 20110711
  Transmission Date: 20111222
  Serious: Yes (Hospitalization)
  Sender: FDA-Public Use
  Company Number: US-ROCHE-789685

PATIENT
  Sex: Male

DRUGS (14)
  1. RANITIDINE [Concomitant]
     Dates: start: 20100920
  2. VICODIN [Concomitant]
     Dates: start: 20101208, end: 20101208
  3. BLINDED BMS-790052 (HCV NS5A INHIBITOR) [Suspect]
     Indication: HEPATITIS C
     Route: 048
     Dates: start: 20100910, end: 20110304
  4. SPIRONOLACTONE [Concomitant]
     Dates: start: 20100301
  5. DILAUDID [Concomitant]
     Dates: start: 20101208, end: 20101208
  6. TYLENOL-500 [Concomitant]
     Dates: start: 20101016
  7. LANSOPRAZOLE [Concomitant]
     Dates: start: 20100301, end: 20100824
  8. PROPRANOLOL [Concomitant]
     Dates: start: 20100301
  9. CLINDAMYCIN [Concomitant]
     Dates: start: 20101208, end: 20110103
  10. BENZONATATE [Concomitant]
     Dates: start: 20101029
  11. PEGINTERFERON ALFA-2A [Suspect]
     Indication: HEPATITIS C
     Route: 058
     Dates: start: 20100920, end: 20110411
  12. RIBAVIRIN [Suspect]
     Indication: HEPATITIS C
     Route: 048
     Dates: start: 20100920, end: 20110411
  13. MEGAVITAMIN [Concomitant]
  14. URSO 250 [Concomitant]
     Dates: start: 20110502

REACTIONS (4)
  - ENCEPHALOPATHY [None]
  - RENAL FAILURE [None]
  - SEPSIS [None]
  - PERITONITIS BACTERIAL [None]
